FAERS Safety Report 7689720-3 (Version None)
Quarter: 2011Q3

REPORT INFORMATION
  Report Type: 
  Country: None (occurrence: None)
  Receive Date: 20110817
  Receipt Date: 20110817
  Transmission Date: 20111222
  Serious: Yes (Other)
  Sender: FDA-Public Use
  Company Number: US-BAYER-2011-073656

PATIENT

DRUGS (2)
  1. LIPITOR [Concomitant]
     Dosage: 10 MG, UNK
     Dates: start: 19810101
  2. AVELOX [Suspect]

REACTIONS (1)
  - CARDIAC ARREST [None]
